FAERS Safety Report 4283058-2 (Version None)
Quarter: 2004Q1

REPORT INFORMATION
  Report Type: 
  Country: None (occurrence: None)
  Receive Date: 20040129
  Receipt Date: 20040120
  Transmission Date: 20041129
  Serious: Yes (Death)
  Sender: FDA-Public Use
  Company Number: 2004UW01061

PATIENT
  Age: 83 Year
  Sex: Female

DRUGS (2)
  1. SEROQUEL [Suspect]
     Dosage: 100 MG DAILY PO
     Route: 048
  2. CELEXA [Concomitant]

REACTIONS (1)
  - NEUROLEPTIC MALIGNANT SYNDROME [None]
